FAERS Safety Report 20611218 (Version 1)
Quarter: 2022Q1

REPORT INFORMATION
  Report Type: Spontaneous
  Country: US (occurrence: None)
  Receive Date: 20220317
  Receipt Date: 20220317
  Transmission Date: 20220424
  Serious: Yes (Other)
  Sender: FDA-Public Use
  Company Number: None

PATIENT
  Age: 64 Year
  Sex: Male

DRUGS (1)
  1. POMALYST [Suspect]
     Active Substance: POMALIDOMIDE
     Indication: Plasma cell myeloma
     Dosage: OTHER FREQUENCY : QDX21 /28D;?
     Route: 048
     Dates: start: 20220209

REACTIONS (2)
  - Peripheral swelling [None]
  - Deep vein thrombosis [None]

NARRATIVE: CASE EVENT DATE: 20220210
